FAERS Safety Report 4915344-4 (Version None)
Quarter: 2006Q1

REPORT INFORMATION
  Report Type: 
  Country: None (occurrence: None)
  Receive Date: 20060216
  Receipt Date: 20060216
  Transmission Date: 20060701
  Serious: Yes (Other)
  Sender: FDA-Public Use
  Company Number: None

PATIENT
  Sex: Male
  Weight: 71.0333 kg

DRUGS (2)
  1. DULOXETINE (CYMBALTA) 60 MG [Suspect]
     Indication: DEPRESSION
     Dosage: 60 MG DAILY ORAL
     Route: 048
     Dates: start: 20051104
  2. DULOXETINE (CYMBALTA) 60 MG [Suspect]
     Indication: DEPRESSION
     Dosage: 60 MG DAILY ORAL
     Route: 048
     Dates: start: 20051111

REACTIONS (8)
  - FEELING ABNORMAL [None]
  - FEELING COLD [None]
  - HEADACHE [None]
  - HEARING IMPAIRED [None]
  - HYPERHIDROSIS [None]
  - MUSCLE TWITCHING [None]
  - MYALGIA [None]
  - PAIN [None]
